FAERS Safety Report 8135769-6 (Version None)
Quarter: 2012Q1

REPORT INFORMATION
  Report Type: 
  Country: None (occurrence: None)
  Receive Date: 20120214
  Receipt Date: 20120131
  Transmission Date: 20120608
  Serious: Yes (Life-Threatening, Hospitalization)
  Sender: FDA-Public Use
  Company Number: NO-CELGENEUS-122-50794-11110777

PATIENT
  Sex: Male

DRUGS (9)
  1. VIDAZA [Suspect]
     Dosage: 200 MILLIGRAM
     Route: 058
     Dates: start: 20110801, end: 20110804
  2. PREDNISOLONE [Concomitant]
     Dosage: 7.5 MILLIGRAM
     Route: 048
  3. CALCIGRAN FORTE [Concomitant]
     Dosage: 2 DOSAGE FORMS
     Route: 048
  4. METFORMIN HCL [Concomitant]
     Dosage: 500 MILLIGRAM
     Route: 048
  5. LEVEMIR [Concomitant]
     Dosage: 15 IU (INTERNATIONAL UNIT)
     Route: 058
  6. AVODART [Concomitant]
     Dosage: .5 MILLIGRAM
     Route: 048
  7. ASPIRIN [Concomitant]
     Dosage: 75 MILLIGRAM
     Route: 048
  8. NEXIUM [Concomitant]
     Dosage: 40 MILLIGRAM
     Route: 048
  9. GENSUMYCIN [Concomitant]
     Route: 065
     Dates: start: 20110801

REACTIONS (1)
  - VASCULITIS NECROTISING [None]
